FAERS Safety Report 10597480 (Version 1)
Quarter: 2014Q4

REPORT INFORMATION
  Report Type: Spontaneous
  Country: US (occurrence: None)
  Receive Date: 20141120
  Receipt Date: 20141120
  Transmission Date: 20150529
  Serious: Yes (Hospitalization)
  Sender: FDA-Public Use
  Company Number: None

PATIENT
  Age: 38 Year
  Sex: Male
  Weight: 93.3 kg

DRUGS (2)
  1. IPILIMUMAB [Suspect]
     Active Substance: IPILIMUMAB
     Dates: start: 20140205
  2. RADIATION THERAPY [Suspect]
     Active Substance: RADIATION THERAPY
     Dosage: 2400CGY
     Dates: start: 20140203

REACTIONS (13)
  - Muscular weakness [None]
  - Nausea [None]
  - Asthenia [None]
  - Back pain [None]
  - Malignant neoplasm progression [None]
  - Headache [None]
  - Neck pain [None]
  - Fall [None]
  - Confusional state [None]
  - Metastases to central nervous system [None]
  - Vomiting [None]
  - Haemorrhage [None]
  - Malignant melanoma [None]

NARRATIVE: CASE EVENT DATE: 20141113
